FAERS Safety Report 8813726 (Version 2)
Quarter: 2015Q4

REPORT INFORMATION
  Report Type: Spontaneous
  Country: US (occurrence: US)
  Receive Date: 20120928
  Receipt Date: 20151212
  Transmission Date: 20160305
  Serious: Yes (Death, Other)
  Sender: FDA-Public Use
  Company Number: US-ASTRAZENECA-2012SE74452

PATIENT
  Age: 75 Year
  Sex: Male
  Weight: 61.2 kg

DRUGS (1)
  1. CRESTOR [Suspect]
     Active Substance: ROSUVASTATIN CALCIUM
     Indication: BLOOD CHOLESTEROL INCREASED
     Route: 048
     Dates: start: 2010, end: 201204

REACTIONS (13)
  - Myocardial infarction [Unknown]
  - Blood triglycerides increased [Unknown]
  - Arrhythmia [Unknown]
  - Cardiac failure congestive [Fatal]
  - Ischaemia [Unknown]
  - Syncope [Unknown]
  - Pneumonia [Fatal]
  - Diabetes mellitus [Unknown]
  - Hypertension [Unknown]
  - Angina pectoris [Unknown]
  - Coronary artery disease [Unknown]
  - Cardiovascular disorder [Unknown]
  - Cardiomyopathy [Unknown]
